FAERS Safety Report 10129511 (Version 1)
Quarter: 2014Q2

REPORT INFORMATION
  Report Type: Report from Study
  Country: CN (occurrence: CN)
  Receive Date: 20140428
  Receipt Date: 20140428
  Transmission Date: 20141212
  Serious: Yes (Death)
  Sender: FDA-Public Use
  Company Number: CN-SA-2014SA054035

PATIENT
  Sex: 0

DRUGS (3)
  1. ANTI-THYMOCYTE GLOBULIN (RABBIT) [Suspect]
     Indication: BONE MARROW CONDITIONING REGIMEN
     Route: 065
  2. CYCLOSPORINE [Suspect]
     Indication: PROPHYLAXIS AGAINST GRAFT VERSUS HOST DISEASE
     Route: 065
  3. THERAPEUTIC RADIOPHARMACEUTICALS [Suspect]
     Indication: BONE MARROW CONDITIONING REGIMEN
     Dosage: 10 GY IN FIVE FRACTIONS
     Route: 065

REACTIONS (1)
  - Death [Fatal]
